FAERS Safety Report 21904046 (Version 2)
Quarter: 2023Q1

REPORT INFORMATION
  Report Type: Spontaneous
  Country: DE (occurrence: DE)
  Receive Date: 20230124
  Receipt Date: 20230202
  Transmission Date: 20230418
  Serious: Yes (Other)
  Sender: FDA-Public Use
  Company Number: None

PATIENT
  Age: 35 Year
  Sex: Female
  Weight: 89 kg

DRUGS (9)
  1. CYTOTEC [Suspect]
     Active Substance: MISOPROSTOL
     Indication: Labour induction
     Dosage: MULTIPLE 1/4 AND 1/2 TABLET
     Route: 048
     Dates: start: 20181231, end: 20190101
  2. CYTOTEC [Suspect]
     Active Substance: MISOPROSTOL
     Dosage: MULTIPLE 1/4 TABLET
     Route: 048
     Dates: start: 20181229, end: 20190101
  3. CYTOTEC [Suspect]
     Active Substance: MISOPROSTOL
     Dosage: 0.5 DF
     Route: 067
     Dates: start: 20181231, end: 20181231
  4. OXYTOCIN [Concomitant]
     Active Substance: OXYTOCIN
     Dosage: 10:18 1 ML10:28 1 AND 2 ML + 2 ML
     Dates: start: 20181231
  5. BUTYLSCOPOLAMINE BROMIDE [Concomitant]
     Active Substance: BUTYLSCOPOLAMINE BROMIDE
     Dosage: 1 TABLET OF BUSCOPAN
     Dates: start: 20181230
  6. BUTYLSCOPOLAMINE BROMIDE [Concomitant]
     Active Substance: BUTYLSCOPOLAMINE BROMIDE
     Dosage: 1 AMPOULE OF BUSCOPAN
     Dates: start: 20181230
  7. MEPTAZINOL HYDROCHLORIDE [Concomitant]
     Active Substance: MEPTAZINOL HYDROCHLORIDE
     Dosage: 1 AMPOULE OF MEPTIDE
     Dates: start: 20181230
  8. MISOPROSTOL [Concomitant]
     Active Substance: MISOPROSTOL
     Dosage: 2 MG TOTAL
     Route: 067
     Dates: start: 20181229, end: 20181229
  9. JONOSTERIL [CALCIUM ACETATE;MAGNESIUM ACETATE TETRAHYDRATE;POTASSIUM A [Concomitant]
     Dosage: 500 ML
     Dates: start: 20181230

REACTIONS (7)
  - Postpartum thrombosis [Recovered/Resolved]
  - Ovarian vein thrombosis [Recovered/Resolved]
  - Arrested labour [Recovered/Resolved]
  - Uterine tachysystole [Recovered/Resolved]
  - Anaemia of pregnancy [Recovered/Resolved]
  - Off label use [Unknown]
  - Off label use [Unknown]

NARRATIVE: CASE EVENT DATE: 20181231
